FAERS Safety Report 5825532-0 (Version None)
Quarter: 2008Q3

REPORT INFORMATION
  Report Type: 
  Country: None (occurrence: None)
  Receive Date: 20080729
  Receipt Date: 20080724
  Transmission Date: 20090109
  Serious: Yes (Congenital Anomaly)
  Sender: FDA-Public Use
  Company Number: FR-EISAI MEDICAL RESEARCH-E2090-00514-SPO-FR

PATIENT

DRUGS (3)
  1. ZONEGRAN [Suspect]
     Indication: DRUG EXPOSURE DURING PREGNANCY
     Route: 064
  2. LEVETIRACETAM [Concomitant]
     Indication: DRUG EXPOSURE DURING PREGNANCY
     Route: 048
  3. ORAL CONTRACEPTION [Concomitant]
     Route: 048

REACTIONS (3)
  - BRAIN HERNIATION [None]
  - DRUG EXPOSURE DURING PREGNANCY [None]
  - MENINGOCELE [None]
